FAERS Safety Report 16811497 (Version 3)
Quarter: 2019Q4

REPORT INFORMATION
  Report Type: Spontaneous
  Country: US (occurrence: US)
  Receive Date: 20190916
  Receipt Date: 20191015
  Transmission Date: 20200122
  Serious: Yes (Other)
  Sender: FDA-Public Use
  Company Number: US-SA-2019SA253439

PATIENT
  Age: 74 Year
  Sex: Female
  Weight: 78 kg

DRUGS (1)
  1. LANTUS SOLOSTAR [Suspect]
     Active Substance: INSULIN GLARGINE
     Indication: DIABETES MELLITUS
     Dosage: 30 U, Q12H
     Route: 065

REACTIONS (4)
  - Injection site haemorrhage [Recovered/Resolved]
  - Product contamination with body fluid [Unknown]
  - Inappropriate schedule of product administration [Unknown]
  - Breast cancer [Unknown]
